FAERS Safety Report 7597195-8 (Version None)
Quarter: 2011Q3

REPORT INFORMATION
  Report Type: 
  Country: None (occurrence: None)
  Receive Date: 20110708
  Receipt Date: 20100818
  Transmission Date: 20111222
  Serious: No
  Sender: FDA-Public Use
  Company Number: US-GLAXOSMITHKLINE-A0876520A

PATIENT
  Age: 72 Year
  Sex: Male

DRUGS (4)
  1. AMLODIPINE [Concomitant]
  2. FLOVENT [Suspect]
     Indication: DYSPNOEA
     Dosage: 2PUFF TWICE PER DAY
     Route: 055
     Dates: end: 20100815
  3. UNKNOWN MEDICATION [Concomitant]
  4. CARVEDILOL [Concomitant]

REACTIONS (3)
  - ASTHENIA [None]
  - STOMATITIS [None]
  - TONGUE ULCERATION [None]
